FAERS Safety Report 9458861 (Version 2)
Quarter: 2013Q4

REPORT INFORMATION
  Report Type: Spontaneous
  Country: US (occurrence: None)
  Receive Date: 20130812
  Receipt Date: 20131021
  Transmission Date: 20140711
  Serious: Yes (Other)
  Sender: FDA-Public Use
  Company Number: MC201300401

PATIENT
  Age: 33 Year
  Sex: Male
  Weight: 99.5 kg

DRUGS (22)
  1. ANGIOMAX, ANGIOX (BIVALIRUDIN) INJECTION [Suspect]
     Indication: PERCUTANEOUS CORONARY INTERVENTION
     Dosage: 16.5 ML (0.83 MG/KG) BOLUS, INTRAVENOUS
     Route: 040
     Dates: start: 20130726, end: 20130726
  2. PLAVIX (CLOPIDOGREL BISULFATE) [Concomitant]
  3. BRILINTA (TICAGRELOR) [Concomitant]
  4. BRILINTA (TIGAGRELOR) [Concomitant]
  5. ASPIRIN (ACETYLSALICYLIC ACID) [Concomitant]
  6. ASPIRIN (ACETYLSALICYLIC ACID) [Concomitant]
  7. EFFEXOR (VENLAFAXINE HYDROCHLORIDE) UNKNOWN [Concomitant]
  8. PROTON PUMP INHIBITORS [Concomitant]
  9. ISOVUE 370 (LOPAMIDOL) [Concomitant]
  10. SUBLIMAZE (FENTANYL CITRATE) [Concomitant]
  11. SUBLIMAZE (FENTANYL CITRATE [Concomitant]
  12. VERSED (MIDAZOLAM HYDROCHLORIDE) [Concomitant]
  13. LIDOCAINE (LIDOCAINE HYDROCHLORIDE) [Concomitant]
  14. MAGNESIUM SULFATE (MAGNESIUM SULFATE) [Concomitant]
  15. NITROGLYCERIN (GLYCERYL TRINITRATE) [Concomitant]
  16. NITROGLYCERIN (GLYCERYL TRINITRATE) [Concomitant]
  17. COREG (CARVEDILOL) [Concomitant]
  18. LISINOPRIL (LISINOPRIL DIHYDRATE) (UNKNOWN [Concomitant]
  19. ATORVASTATIN (ATORVASTATIN CALCIUM) [Concomitant]
  20. PROTONIX (PANTOPRAZOLE SODIUM SESQUIHYDARTE) [Concomitant]
  21. LOPRESSOR (METOPROLOL TARTRATE) [Concomitant]
  22. HEPARIN (HEPARIN SODIUM) [Concomitant]

REACTIONS (3)
  - Thrombosis in device [None]
  - Coronary artery dissection [None]
  - Vomiting [None]
